FAERS Safety Report 4416578-8 (Version None)
Quarter: 2004Q3

REPORT INFORMATION
  Report Type: 
  Country: None (occurrence: None)
  Receive Date: 20040805
  Receipt Date: 20040709
  Transmission Date: 20050211
  Serious: Yes (Death)
  Sender: FDA-Public Use
  Company Number: JP-BRISTOL-MYERS SQUIBB COMPANY-12648861

PATIENT
  Age: 10 Year
  Sex: Female

DRUGS (5)
  1. ENDOXAN [Suspect]
     Indication: NEUROBLASTOMA
     Route: 042
     Dates: start: 20000429, end: 20030424
  2. UROMITEXAN [Suspect]
     Indication: NEUROBLASTOMA
     Route: 042
     Dates: start: 20000429, end: 20030424
  3. ONCOVIN [Suspect]
     Indication: NEUROBLASTOMA
     Route: 042
     Dates: start: 20000429, end: 20030424
  4. RANDA [Suspect]
     Indication: NEUROBLASTOMA
     Route: 042
     Dates: start: 20000429, end: 20030424
  5. KYTRIL [Suspect]
     Indication: NEUROBLASTOMA
     Route: 042
     Dates: start: 20000429, end: 20030424

REACTIONS (1)
  - PULMONARY FIBROSIS [None]
